FAERS Safety Report 6093907-3 (Version None)
Quarter: 2009Q1

REPORT INFORMATION
  Report Type: 
  Country: None (occurrence: None)
  Receive Date: 20090226
  Receipt Date: 20090216
  Transmission Date: 20090719
  Serious: Yes (Other)
  Sender: FDA-Public Use
  Company Number: US-JNJFOC-20090204246

PATIENT
  Age: 52 Year
  Sex: Male
  Weight: 99.79 kg

DRUGS (6)
  1. TYLENOL (CAPLET) [Suspect]
     Route: 048
  2. TYLENOL (CAPLET) [Suspect]
     Indication: BACK PAIN
     Route: 048
  3. IBUPROFEN [Concomitant]
     Indication: PAIN
  4. ASPIRIN [Concomitant]
     Indication: PROPHYLAXIS
  5. MULTI-VITAMIN [Concomitant]
     Indication: MEDICAL DIET
  6. ALCOHOL [Concomitant]

REACTIONS (1)
  - HAEMATEMESIS [None]
